FAERS Safety Report 20855166 (Version 2)
Quarter: 2022Q2

REPORT INFORMATION
  Report Type: Report from Study
  Country: US (occurrence: US)
  Receive Date: 20220520
  Receipt Date: 20220525
  Transmission Date: 20220720
  Serious: No
  Sender: FDA-Public Use
  Company Number: US-OTSUKA-2021_035740

PATIENT
  Sex: Male
  Weight: 122 kg

DRUGS (2)
  1. CEDAZURIDINE\DECITABINE [Suspect]
     Active Substance: CEDAZURIDINE\DECITABINE
     Indication: Myelodysplastic syndrome
     Dosage: (35 MG OF DECITABINE AND 100 MG OF CEDAZURIDINE), QD (ON DAYS 1-5) OF EACH 28 DAY CYCLE
     Route: 048
     Dates: start: 20210923
  2. CEDAZURIDINE\DECITABINE [Suspect]
     Active Substance: CEDAZURIDINE\DECITABINE
     Dosage: (35 MG OF DECITABINE AND 100 MG OF CEDAZURIDINE), QD (ON DAYS 1-5) OF EACH 28 DAY CYCLE
     Route: 048

REACTIONS (4)
  - Malaise [Unknown]
  - Contusion [Unknown]
  - Platelet count decreased [Unknown]
  - Therapy interrupted [Unknown]
